FAERS Safety Report 4825119-2 (Version None)
Quarter: 2005Q4

REPORT INFORMATION
  Report Type: 
  Country: None (occurrence: None)
  Receive Date: 20051109
  Receipt Date: 20051109
  Transmission Date: 20060501
  Serious: Yes (Hospitalization)
  Sender: FDA-Public Use
  Company Number: None

PATIENT
  Age: 78 Year
  Sex: Male

DRUGS (1)
  1. MEGACE [Suspect]
     Indication: WEIGHT DECREASED
     Dosage: 20ML, DAILY, ORAL
     Route: 048
     Dates: start: 20050916

REACTIONS (7)
  - CARDIAC FAILURE CONGESTIVE [None]
  - CARDIOMYOPATHY [None]
  - CHEST PAIN [None]
  - CORONARY ARTERY DISEASE [None]
  - MYOCARDIAL ISCHAEMIA [None]
  - SKIN ULCER [None]
  - THERAPEUTIC AGENT TOXICITY [None]
